FAERS Safety Report 5148318-1 (Version None)
Quarter: 2006Q4

REPORT INFORMATION
  Report Type: 
  Country: None (occurrence: None)
  Receive Date: 20061106
  Receipt Date: 20061019
  Transmission Date: 20070319
  Serious: Yes (Other)
  Sender: FDA-Public Use
  Company Number: 2006133386

PATIENT
  Age: 47 Year
  Sex: Male

DRUGS (3)
  1. NEURONTIN [Suspect]
     Indication: EPILEPSY
     Dosage: 600 MG, ORAL
     Route: 048
     Dates: start: 20060928, end: 20061006
  2. DEPAKENE [Suspect]
     Indication: EPILEPSY
     Dosage: GRAM, ORAL
     Route: 048
  3. PHENYTOIN [Suspect]
     Indication: EPILEPSY
     Dosage: 2.6 GRAM, ORAL
     Route: 048

REACTIONS (4)
  - GAIT DISTURBANCE [None]
  - PALLOR [None]
  - SOMNOLENCE [None]
  - URINARY INCONTINENCE [None]
